FAERS Safety Report 17699395 (Version 1)
Quarter: 2020Q2

REPORT INFORMATION
  Report Type: Spontaneous
  Country: SE (occurrence: SE)
  Receive Date: 20200423
  Receipt Date: 20200423
  Transmission Date: 20200714
  Serious: Yes (Other)
  Sender: FDA-Public Use
  Company Number: SE-ASTRAZENECA-2020SE53526

PATIENT
  Sex: Female

DRUGS (1)
  1. IRESSA [Suspect]
     Active Substance: GEFITINIB
     Indication: LUNG NEOPLASM MALIGNANT
     Route: 048
     Dates: start: 2014

REACTIONS (5)
  - Oropharyngeal blistering [Unknown]
  - Body temperature increased [Unknown]
  - Metastases to bone [Unknown]
  - Feeling abnormal [Unknown]
  - Diarrhoea [Unknown]
